FAERS Safety Report 8515889-4 (Version None)
Quarter: 2012Q3

REPORT INFORMATION
  Report Type: 
  Country: None (occurrence: None)
  Receive Date: 20120717
  Receipt Date: 20120716
  Transmission Date: 20120928
  Serious: Yes (Other)
  Sender: FDA-Public Use
  Company Number: PHHY2012CN031210

PATIENT
  Sex: Female

DRUGS (2)
  1. ZOLEDRONIC ACID [Suspect]
     Indication: METASTASES TO BONE
     Dosage: UNK
  2. ZOMETA [Suspect]
     Indication: METASTASES TO BONE
     Dosage: UNK

REACTIONS (2)
  - OSTEONECROSIS OF JAW [None]
  - BONE LESION [None]
